FAERS Safety Report 16370665 (Version 4)
Quarter: 2020Q1

REPORT INFORMATION
  Report Type: Spontaneous
  Country: US (occurrence: US)
  Receive Date: 20190530
  Receipt Date: 20200114
  Transmission Date: 20200409
  Serious: Yes (Death, Hospitalization, Other)
  Sender: FDA-Public Use
  Company Number: US-JNJFOC-20190523839

PATIENT
  Age: 73 Year
  Sex: Male
  Weight: 78.6 kg

DRUGS (2)
  1. ZYTIGA [Suspect]
     Active Substance: ABIRATERONE ACETATE
     Route: 048
  2. ZYTIGA [Suspect]
     Active Substance: ABIRATERONE ACETATE
     Indication: PRODUCT USED FOR UNKNOWN INDICATION
     Route: 048
     Dates: start: 201908

REACTIONS (8)
  - Hospitalisation [Unknown]
  - Muscular weakness [Unknown]
  - Joint swelling [Unknown]
  - Drug ineffective [Unknown]
  - Death [Fatal]
  - Hypertension [Unknown]
  - Pancreatic carcinoma stage IV [Unknown]
  - Disease progression [Unknown]

NARRATIVE: CASE EVENT DATE: 20190930
